FAERS Safety Report 8570244-6 (Version None)
Quarter: 2012Q3

REPORT INFORMATION
  Report Type: 
  Country: None (occurrence: None)
  Receive Date: 20120803
  Receipt Date: 20120725
  Transmission Date: 20120928
  Serious: Yes (Hospitalization, Other)
  Sender: FDA-Public Use
  Company Number: US-ROCHE-1056417

PATIENT
  Sex: Female
  Weight: 67.646 kg

DRUGS (11)
  1. DILAUDID [Concomitant]
     Route: 048
  2. PROMETHAZINE [Concomitant]
     Route: 054
  3. DOCUSATE CALCIUM [Concomitant]
     Route: 048
  4. ZOMETA [Concomitant]
  5. DUKES SOLUTION (MAALOX, BENADRYL, VISCOUS XYLOCAINE, NYSTATIN) [Concomitant]
  6. ZELBORAF [Suspect]
     Dates: start: 20120316
  7. OMEPRAZOLE [Concomitant]
     Route: 048
  8. ZELBORAF [Suspect]
     Indication: METASTATIC MALIGNANT MELANOMA
     Route: 048
     Dates: start: 20120315
  9. CARAFATE [Concomitant]
  10. TRIAMCINOLONE ACETONIDE [Concomitant]
     Route: 061
  11. DESONIDE [Concomitant]
     Route: 061
     Dates: start: 20120401

REACTIONS (10)
  - FATIGUE [None]
  - NAUSEA [None]
  - RASH [None]
  - DYSPHAGIA [None]
  - OESOPHAGITIS [None]
  - VOMITING [None]
  - NEUTROPENIA [None]
  - ALOPECIA [None]
  - MASS [None]
  - CONSTIPATION [None]
